FAERS Safety Report 23966160 (Version 1)
Quarter: 2024Q2

REPORT INFORMATION
  Report Type: Spontaneous
  Country: US (occurrence: US)
  Receive Date: 20240612
  Receipt Date: 20240612
  Transmission Date: 20240716
  Serious: Yes (Life-Threatening, Hospitalization, Other)
  Sender: FDA-Public Use
  Company Number: US-LUPIN PHARMACEUTICALS INC.-2024-04693

PATIENT
  Age: 34 Year
  Sex: Male

DRUGS (9)
  1. QUETIAPINE FUMARATE [Interacting]
     Active Substance: QUETIAPINE FUMARATE
     Indication: Bipolar disorder
     Dosage: 400 MG, BID
     Route: 065
  2. QUETIAPINE FUMARATE [Interacting]
     Active Substance: QUETIAPINE FUMARATE
     Dosage: 50 MG, QD
     Route: 065
  3. CLOZAPINE [Interacting]
     Active Substance: CLOZAPINE
     Indication: Bipolar disorder
     Dosage: 100 MG, QD
     Route: 065
  4. CLOZAPINE [Interacting]
     Active Substance: CLOZAPINE
     Dosage: 450 MG, QD (TITRATED OVER 3 MONTHS FROM 100 TO 450 MG DAILY)
     Route: 065
  5. CLOZAPINE [Interacting]
     Active Substance: CLOZAPINE
     Dosage: 50 MG, QD
     Route: 065
  6. CLOZAPINE [Interacting]
     Active Substance: CLOZAPINE
     Dosage: 50 MG, TID
     Route: 065
  7. BENZTROPINE [Interacting]
     Active Substance: BENZTROPINE
     Indication: Extrapyramidal disorder
     Dosage: UNK
     Route: 065
  8. BENZTROPINE [Interacting]
     Active Substance: BENZTROPINE
     Dosage: 1 MG, BID
     Route: 065
  9. SENNA [Concomitant]
     Active Substance: SENNA LEAF\SENNOSIDES\SENNOSIDES A AND B
     Indication: Constipation
     Dosage: UNK
     Route: 065

REACTIONS (11)
  - Gastrointestinal hypomotility [Unknown]
  - Drug interaction [Unknown]
  - Drug resistance [Unknown]
  - Loss of consciousness [Unknown]
  - Pulse abnormal [Unknown]
  - Stupor [Unknown]
  - Dehydration [Unknown]
  - Septic shock [Unknown]
  - Clostridium test positive [Unknown]
  - Intestinal obstruction [Unknown]
  - Enteritis [Unknown]
